FAERS Safety Report 12284295 (Version 2)
Quarter: 2016Q2

REPORT INFORMATION
  Report Type: Spontaneous
  Country: US (occurrence: US)
  Receive Date: 20160420
  Receipt Date: 20160604
  Transmission Date: 20160815
  Serious: No
  Sender: FDA-Public Use
  Company Number: PHEH2016US009074

PATIENT
  Sex: Female

DRUGS (1)
  1. COSENTYX [Suspect]
     Active Substance: SECUKINUMAB
     Indication: PRODUCT USED FOR UNKNOWN INDICATION
     Dosage: UNK
     Dates: start: 20160411

REACTIONS (1)
  - Injection site bruising [Recovering/Resolving]
